FAERS Safety Report 6898779-2 (Version None)
Quarter: 2010Q3

REPORT INFORMATION
  Report Type: 
  Country: None (occurrence: None)
  Receive Date: 20100802
  Receipt Date: 20071127
  Transmission Date: 20110219
  Serious: No
  Sender: FDA-Public Use
  Company Number: US-PFIZER INC-2007079698

PATIENT
  Sex: Male
  Weight: 93 kg

DRUGS (4)
  1. LYRICA [Suspect]
     Indication: CONTUSION
     Route: 048
     Dates: start: 20070709, end: 20070801
  2. PARACETAMOL [Concomitant]
  3. VICODIN [Concomitant]
  4. ALL OTHER THERAPEUTIC PRODUCTS [Concomitant]

REACTIONS (4)
  - DIZZINESS [None]
  - DYSPNOEA [None]
  - SOMNOLENCE [None]
  - VISION BLURRED [None]
